FAERS Safety Report 7150285-6 (Version None)
Quarter: 2010Q4

REPORT INFORMATION
  Report Type: 
  Country: None (occurrence: None)
  Receive Date: 20101123
  Receipt Date: 20101117
  Transmission Date: 20110411
  Serious: Yes (Hospitalization, Disabling)
  Sender: FDA-Public Use
  Company Number: 2010SP053547

PATIENT
  Age: 49 Year
  Sex: Male

DRUGS (8)
  1. SAPHRIS [Suspect]
     Indication: BIPOLAR DISORDER
     Dosage: 10 MG BID, SL
     Route: 060
     Dates: start: 20100921, end: 20101003
  2. REMERON [Suspect]
     Indication: PRODUCT USED FOR UNKNOWN INDICATION
  3. DEPAKOTE [Suspect]
     Indication: PRODUCT USED FOR UNKNOWN INDICATION
  4. GEODON [Suspect]
     Indication: PRODUCT USED FOR UNKNOWN INDICATION
  5. ZOLOFT [Suspect]
     Indication: PRODUCT USED FOR UNKNOWN INDICATION
  6. MOBIC [Suspect]
     Indication: PRODUCT USED FOR UNKNOWN INDICATION
  7. NYSTATIN [Suspect]
     Indication: PRODUCT USED FOR UNKNOWN INDICATION
  8. KLONOPIN [Suspect]
     Indication: PRODUCT USED FOR UNKNOWN INDICATION

REACTIONS (1)
  - STEVENS-JOHNSON SYNDROME [None]
